FAERS Safety Report 7544489-8 (Version None)
Quarter: 2011Q2

REPORT INFORMATION
  Report Type: 
  Country: None (occurrence: None)
  Receive Date: 20110613
  Receipt Date: 20110421
  Transmission Date: 20111010
  Serious: Yes (Death, Other)
  Sender: FDA-Public Use
  Company Number: PHHY2009JP52595

PATIENT
  Sex: Male

DRUGS (12)
  1. AMLODIPINE [Concomitant]
     Dosage: 5 MG, QD
     Route: 048
     Dates: start: 20090303, end: 20090807
  2. TAURINE [Concomitant]
     Dosage: 3 DF, UNK
     Route: 048
     Dates: start: 20090303, end: 20090807
  3. BASEN [Concomitant]
     Dosage: 0.6 MG, QD
     Route: 048
     Dates: start: 20090303, end: 20090807
  4. URSO 250 [Concomitant]
     Dosage: 300 MG, UNK
     Route: 048
     Dates: start: 20090303, end: 20090807
  5. EXJADE [Suspect]
     Indication: IRON OVERLOAD
     Dosage: 1125 MG, DAILY
     Route: 048
     Dates: start: 20090328, end: 20090807
  6. RED BLOOD CELLS, CONCENTRATED [Concomitant]
     Dosage: 2 U/WEEK
     Dates: start: 20090313, end: 20090802
  7. PLATELETS [Concomitant]
     Dosage: 10 U/WEEK
     Dates: start: 20090313, end: 20090821
  8. LUPRAC [Concomitant]
     Dosage: 8 MG, UNK
     Route: 048
     Dates: start: 20090303, end: 20090807
  9. STARSIS [Concomitant]
     Dosage: 270 MG, UNK
     Route: 048
     Dates: start: 20090303, end: 20090807
  10. LEVOFLOXACIN [Concomitant]
     Dosage: 300 MG, UNK
     Route: 048
     Dates: start: 20090303, end: 20090807
  11. DIFLUCAN [Concomitant]
     Dosage: 100 MG, UNK
     Route: 048
     Dates: start: 20090303, end: 20090807
  12. GLYSENNID [Concomitant]
     Dosage: 24 MG, UNK
     Route: 048
     Dates: start: 20090303, end: 20090807

REACTIONS (2)
  - PNEUMONIA [None]
  - CEREBRAL HAEMORRHAGE [None]
